FAERS Safety Report 10412473 (Version 1)
Quarter: 2014Q3

REPORT INFORMATION
  Report Type: Spontaneous
  Country: US (occurrence: None)
  Receive Date: 20140825
  Receipt Date: 20140825
  Transmission Date: 20150326
  Serious: No
  Sender: FDA-Public Use
  Company Number: None

PATIENT
  Age: 59 Year
  Sex: Female
  Weight: 72.58 kg

DRUGS (4)
  1. PEXOFENADINE [Concomitant]
  2. LEVAQUIN [Suspect]
     Active Substance: LEVOFLOXACIN
     Indication: UPPER RESPIRATORY TRACT INFECTION
     Dosage: 500 MG, PILL, BY MOUTH
     Dates: start: 20100519, end: 20100529
  3. MICARDIS [Concomitant]
     Active Substance: TELMISARTAN
  4. ASPIRIN. [Concomitant]
     Active Substance: ASPIRIN

REACTIONS (2)
  - Movement disorder [None]
  - Arthralgia [None]

NARRATIVE: CASE EVENT DATE: 20100528
